FAERS Safety Report 7499422-4 (Version None)
Quarter: 2011Q2

REPORT INFORMATION
  Report Type: 
  Country: None (occurrence: None)
  Receive Date: 20110524
  Receipt Date: 20110509
  Transmission Date: 20111010
  Serious: Yes (Other)
  Sender: FDA-Public Use
  Company Number: PHHY2011JP22149

PATIENT
  Sex: Female
  Weight: 50 kg

DRUGS (5)
  1. SANDOSTATIN LAR [Suspect]
     Indication: ACROMEGALY
     Dosage: 20 MG, QMO
     Route: 030
     Dates: start: 20080430, end: 20100819
  2. FAMOTIDINE [Concomitant]
     Indication: DYSPEPSIA
     Dosage: 10 MG, UNK
     Dates: start: 20080724
  3. DIOVAN [Concomitant]
     Indication: HYPERTENSION
     Dosage: 80 MG, UNK
     Route: 048
     Dates: start: 20080411
  4. CALBLOCK [Concomitant]
     Indication: HYPERTENSION
     Dosage: 16 MG, UNK
     Route: 048
     Dates: start: 20051110
  5. BROMOCRIPTINE MESYLATE [Concomitant]

REACTIONS (5)
  - HYPERTENSION [None]
  - DIZZINESS [None]
  - MOVEMENT DISORDER [None]
  - REFLUX OESOPHAGITIS [None]
  - CHEST DISCOMFORT [None]
